FAERS Safety Report 16569415 (Version 1)
Quarter: 2019Q3

REPORT INFORMATION
  Report Type: Spontaneous
  Country: US (occurrence: US)
  Receive Date: 20190715
  Receipt Date: 20190715
  Transmission Date: 20191004
  Serious: No
  Sender: FDA-Public Use
  Company Number: US-AUROBINDO-AUR-APL-2018-053334

PATIENT

DRUGS (2)
  1. VALACYCLOVIR HYDROCHLORIDE TABLETS 1G [Suspect]
     Active Substance: VALACYCLOVIR HYDROCHLORIDE
     Indication: HERPES ZOSTER
     Dosage: 1 GRAM, 3 TIMES A DAY
     Route: 048
  2. VALACYCLOVIR HYDROCHLORIDE TABLETS 1G [Suspect]
     Active Substance: VALACYCLOVIR HYDROCHLORIDE
     Dosage: 1 GRAM, ONCE A DAY
     Route: 048

REACTIONS (3)
  - Swelling [Recovered/Resolved]
  - Pain in extremity [Recovered/Resolved]
  - Rash [Recovered/Resolved]
